FAERS Safety Report 23179197 (Version 3)
Quarter: 2024Q3

REPORT INFORMATION
  Report Type: Spontaneous
  Country: US (occurrence: US)
  Receive Date: 20231113
  Receipt Date: 20240723
  Transmission Date: 20241016
  Serious: No
  Sender: PFIZER
  Company Number: US-PFIZER INC-PV202300180829

PATIENT
  Age: 61 Year
  Sex: Female

DRUGS (1)
  1. XELJANZ XR [Suspect]
     Active Substance: TOFACITINIB CITRATE
     Dosage: 11 MG

REACTIONS (3)
  - Ulcer [Not Recovered/Not Resolved]
  - Psoriasis [Unknown]
  - Pain [Unknown]

NARRATIVE: CASE EVENT DATE: 20240101
